FAERS Safety Report 4307742-7 (Version None)
Quarter: 2004Q1

REPORT INFORMATION
  Report Type: 
  Country: None (occurrence: None)
  Receive Date: 20040227
  Receipt Date: 20040227
  Transmission Date: 20041129
  Serious: Yes (Hospitalization)
  Sender: FDA-Public Use
  Company Number: None

PATIENT
  Age: 48 Year
  Sex: Female

DRUGS (4)
  1. INTERFERON [Suspect]
     Indication: MALIGNANT MELANOMA
     Dosage: 19.7 MU QD SC
     Route: 058
     Dates: start: 20010325, end: 20010329
  2. IL-2 [Suspect]
     Indication: MALIGNANT MELANOMA
     Dosage: 3 MU QD SC
     Route: 058
     Dates: start: 20010331, end: 20010412
  3. PROSOPHILA CELL STIMULATED AUTOLOGUS CDB LYMPHANYTIC) [Suspect]
     Indication: MALIGNANT MELANOMA
     Dates: start: 20010331
  4. VICODIN [Concomitant]

REACTIONS (5)
  - ABDOMINAL PAIN UPPER [None]
  - ASTHENIA [None]
  - DEHYDRATION [None]
  - METASTASES TO CENTRAL NERVOUS SYSTEM [None]
  - METASTATIC MALIGNANT MELANOMA [None]
